FAERS Safety Report 13139033 (Version 1)
Quarter: 2017Q1

REPORT INFORMATION
  Report Type: Spontaneous
  Country: US (occurrence: US)
  Receive Date: 20170123
  Receipt Date: 20170123
  Transmission Date: 20170428
  Serious: No
  Sender: FDA-Public Use
  Company Number: US-UNITED THERAPEUTICS-UNT-2016-011864

PATIENT
  Sex: Female

DRUGS (2)
  1. REMODULIN [Suspect]
     Active Substance: TREPROSTINIL
     Indication: PULMONARY ARTERIAL HYPERTENSION
     Dosage: 0.053 ?G/KG, EVERY 48 HOURS
     Route: 041
     Dates: start: 200802
  2. REMODULIN [Suspect]
     Active Substance: TREPROSTINIL
     Dosage: 0.053, ?G/KG, CONTINUING
     Route: 041
     Dates: start: 20150917

REACTIONS (2)
  - Dermatitis contact [Not Recovered/Not Resolved]
  - Injection site nodule [Not Recovered/Not Resolved]

NARRATIVE: CASE EVENT DATE: 20160703
